FAERS Safety Report 6520572-0 (Version None)
Quarter: 2009Q4

REPORT INFORMATION
  Report Type: 
  Country: None (occurrence: None)
  Receive Date: 20091229
  Receipt Date: 20091221
  Transmission Date: 20100525
  Serious: Yes (Hospitalization)
  Sender: FDA-Public Use
  Company Number: US-BRISTOL-MYERS SQUIBB COMPANY-14908651

PATIENT
  Age: 79 Year
  Sex: Female
  Weight: 74 kg

DRUGS (2)
  1. DASATINIB [Suspect]
     Indication: BREAST CANCER
     Dosage: 01DEC09-17DEC09;INTERRUPTED ON 18DEC09
     Dates: start: 20091201
  2. LETROZOLE [Suspect]
     Indication: BREAST CANCER
     Dosage: 01DEC09-17DEC09;INTERRUPTED ON 18DEC09
     Dates: start: 20091201

REACTIONS (1)
  - ANGIOEDEMA [None]
